FAERS Safety Report 17794619 (Version 1)
Quarter: 2020Q2

REPORT INFORMATION
  Report Type: Spontaneous
  Country: FR (occurrence: FR)
  Receive Date: 20200515
  Receipt Date: 20200515
  Transmission Date: 20200714
  Serious: Yes (Death, Other)
  Sender: FDA-Public Use
  Company Number: FR-BRISTOL-MYERS SQUIBB COMPANY-BMS-2020-038632

PATIENT
  Age: 80 Year
  Sex: Female
  Weight: 72 kg

DRUGS (1)
  1. OPDIVO [Suspect]
     Active Substance: NIVOLUMAB
     Indication: METASTATIC MALIGNANT MELANOMA
     Dosage: 480 MILLIGRAM {CYCLICAL}
     Route: 042
     Dates: start: 20200214, end: 20200302

REACTIONS (3)
  - Myocarditis [Fatal]
  - Myasthenic syndrome [Fatal]
  - Myositis [Fatal]

NARRATIVE: CASE EVENT DATE: 20200306
